FAERS Safety Report 6836573-9 (Version None)
Quarter: 2010Q3

REPORT INFORMATION
  Report Type: 
  Country: None (occurrence: None)
  Receive Date: 20100708
  Receipt Date: 20100702
  Transmission Date: 20110219
  Serious: Yes (Hospitalization)
  Sender: FDA-Public Use
  Company Number: 1000014882

PATIENT
  Sex: Female

DRUGS (1)
  1. BYSTOLIC [Suspect]

REACTIONS (1)
  - BRADYCARDIA [None]
